FAERS Safety Report 15563226 (Version 2)
Quarter: 2019Q2

REPORT INFORMATION
  Report Type: Report from Study
  Country: GB (occurrence: GB)
  Receive Date: 20181029
  Receipt Date: 20190530
  Transmission Date: 20190711
  Serious: Yes (Congenital Anomaly, Other)
  Sender: FDA-Public Use
  Company Number: GB-MYLANLABS-2018M1080162

PATIENT

DRUGS (3)
  1. NORVIR [Suspect]
     Active Substance: RITONAVIR
     Indication: HIV INFECTION
     Dosage: 100 MG, QD (100 MG, QD)
     Route: 064
     Dates: start: 20180228
  2. REYATAZ [Suspect]
     Active Substance: ATAZANAVIR SULFATE
     Indication: HIV INFECTION
     Dosage: 300 MG, QD (300 MG, QD)
     Route: 064
     Dates: start: 20180228
  3. EMTRICITABINE/TENOFOVIR DISOPROXIL FUMARATE [Suspect]
     Active Substance: EMTRICITABINE\TENOFOVIR DISOPROXIL FUMARATE
     Indication: HIV INFECTION
     Dosage: 1 DF, QD (1 DF, QD)
     Route: 064
     Dates: start: 20180228

REACTIONS (3)
  - Foetal exposure during pregnancy [Recovered/Resolved]
  - Microcephaly [Unknown]
  - Ultrasound antenatal screen abnormal [Unknown]

NARRATIVE: CASE EVENT DATE: 20180228
